FAERS Safety Report 13626786 (Version 2)
Quarter: 2018Q1

REPORT INFORMATION
  Report Type: Spontaneous
  Country: US (occurrence: US)
  Receive Date: 20170607
  Receipt Date: 20180118
  Transmission Date: 20180508
  Serious: Yes (Other)
  Sender: FDA-Public Use
  Company Number: US-JNJFOC-20150700978

PATIENT
  Sex: Male

DRUGS (3)
  1. RISPERDAL [Suspect]
     Active Substance: RISPERIDONE
     Indication: PARANOIA
     Dosage: DRUG STOPPED IN LATE 2005
     Route: 048
     Dates: start: 2005, end: 2005
  2. RISPERDAL M-TAB [Suspect]
     Active Substance: RISPERIDONE
     Indication: PRODUCT USED FOR UNKNOWN INDICATION
     Route: 048
  3. RISPERDAL [Suspect]
     Active Substance: RISPERIDONE
     Indication: DEPRESSION
     Dosage: DRUG STOPPED IN LATE 2005
     Route: 048
     Dates: start: 2005, end: 2005

REACTIONS (4)
  - Muscle spasms [Unknown]
  - Weight increased [Unknown]
  - Gynaecomastia [Unknown]
  - Hyperglycaemia [Unknown]
